FAERS Safety Report 4933166-5 (Version None)
Quarter: 2006Q1

REPORT INFORMATION
  Report Type: 
  Country: None (occurrence: None)
  Receive Date: 20060306
  Receipt Date: 20040923
  Transmission Date: 20060701
  Serious: Yes (Hospitalization, Disabling)
  Sender: FDA-Public Use
  Company Number: US-MERCK-0409USA02042

PATIENT
  Age: 29 Year
  Sex: Female
  Weight: 91 kg

DRUGS (3)
  1. PRILOSEC [Concomitant]
     Route: 065
  2. SKELAXIN [Concomitant]
     Route: 065
  3. VIOXX [Suspect]
     Indication: BACK PAIN
     Route: 048
     Dates: start: 20010501, end: 20010529

REACTIONS (9)
  - ACUTE MYOCARDIAL INFARCTION [None]
  - ARTERIOSPASM CORONARY [None]
  - CELLULITIS [None]
  - CHEST PAIN [None]
  - CORONARY ARTERY THROMBOSIS [None]
  - FIBROMYALGIA [None]
  - LUNG INFILTRATION [None]
  - PERICARDITIS [None]
  - PULMONARY OEDEMA [None]
